FAERS Safety Report 16654815 (Version 6)
Quarter: 2022Q1

REPORT INFORMATION
  Report Type: Spontaneous
  Country: ES (occurrence: ES)
  Receive Date: 20190801
  Receipt Date: 20220218
  Transmission Date: 20220423
  Serious: Yes (Other)
  Sender: FDA-Public Use
  Company Number: ES-AUROBINDO-AUR-APL-2019-043121

PATIENT
  Age: 69 Year
  Sex: Male

DRUGS (8)
  1. VALSARTAN [Interacting]
     Active Substance: VALSARTAN
     Indication: Hypertension
     Dosage: 160 MILLIGRAM, ONCE A DAY
     Route: 065
     Dates: start: 201905
  2. TAMSULOSIN [Suspect]
     Active Substance: TAMSULOSIN
     Indication: Benign prostatic hyperplasia
     Dosage: 0.4 MILLIGRAM, ONCE A DAY (0-0-1)
     Route: 065
     Dates: start: 2017
  3. TAMSULOSIN [Suspect]
     Active Substance: TAMSULOSIN
     Dosage: 1 DOSAGE FORM, ONCE A DAY
     Route: 065
  4. REPAGLINIDE [Interacting]
     Active Substance: REPAGLINIDE
     Indication: Type 2 diabetes mellitus
     Dosage: 1 MILLIGRAM, ONCE A DAY, 1 MILLIGRAM (1-2-1)
     Route: 065
     Dates: start: 2017
  5. REPAGLINIDE [Interacting]
     Active Substance: REPAGLINIDE
     Dosage: 4 DOSAGE FORM, ONCE A DAY
     Route: 048
  6. REPAGLINIDE [Interacting]
     Active Substance: REPAGLINIDE
     Dosage: 1 DOSAGE FORM, TWO TIMES A DAY
     Route: 065
  7. SITAGLIPTIN [Suspect]
     Active Substance: SITAGLIPTIN
     Indication: Type 2 diabetes mellitus
     Dosage: 50 MILLIGRAM
     Route: 065
  8. SITAGLIPTIN [Suspect]
     Active Substance: SITAGLIPTIN
     Dosage: 100 MILLIGRAM, ONCE A DAY (0-1-0)
     Route: 065
     Dates: start: 2017

REACTIONS (5)
  - Diabetic metabolic decompensation [Recovered/Resolved]
  - Hypoglycaemia [Recovered/Resolved]
  - Drug interaction [Recovered/Resolved]
  - Intentional product misuse [Unknown]
  - Asthenia [Unknown]
